FAERS Safety Report 14345761 (Version 1)
Quarter: 2018Q1

REPORT INFORMATION
  Report Type: Spontaneous
  Country: CZ (occurrence: CZ)
  Receive Date: 20180103
  Receipt Date: 20180103
  Transmission Date: 20180509
  Serious: Yes (Other)
  Sender: FDA-Public Use
  Company Number: CZ-JNJFOC-20171237737

PATIENT
  Age: 59 Year
  Sex: Female

DRUGS (2)
  1. METAMIZOLE [Suspect]
     Active Substance: METAMIZOLE
     Indication: PAIN
     Route: 065
  2. TRAMADOL. [Suspect]
     Active Substance: TRAMADOL
     Indication: PAIN
     Route: 065

REACTIONS (2)
  - Duodenal ulcer haemorrhage [Recovered/Resolved]
  - Drug ineffective [Unknown]
